FAERS Safety Report 5675556-1 (Version None)
Quarter: 2008Q1

REPORT INFORMATION
  Report Type: 
  Country: None (occurrence: None)
  Receive Date: 20080303
  Receipt Date: 20080306
  Transmission Date: 20080703
  Serious: Yes (Death)
  Sender: FDA-Public Use
  Company Number: GB-BRACCO-BRO-012408

PATIENT
  Age: 77 Year
  Sex: Male

DRUGS (2)
  1. MULTIHANCE [Suspect]
     Indication: NUCLEAR MAGNETIC RESONANCE IMAGING
     Route: 042
     Dates: start: 20071128, end: 20071128
  2. OMNIPAQUE 300 [Suspect]
     Indication: ANGIOGRAM
     Route: 065
     Dates: start: 20071126, end: 20071126

REACTIONS (1)
  - RENAL FAILURE ACUTE [None]
